FAERS Safety Report 8136241-X (Version None)
Quarter: 2012Q1

REPORT INFORMATION
  Report Type: 
  Country: None (occurrence: None)
  Receive Date: 20120210
  Receipt Date: 20120126
  Transmission Date: 20120608
  Serious: Yes (Hospitalization)
  Sender: FDA-Public Use
  Company Number: 2012000007

PATIENT
  Age: 60 Year
  Sex: Female

DRUGS (4)
  1. ACEON [Suspect]
     Indication: HYPERTENSION
     Dosage: 4 MG, QD, ORAL
     Route: 048
     Dates: start: 20101021, end: 20111106
  2. DEPAMIDE (VALPROMIDE) [Suspect]
     Indication: DEPRESSION
     Dosage: 300 MG, TID, ORAL
     Route: 048
     Dates: end: 20111106
  3. ALPRAZOLAM [Suspect]
     Indication: PRODUCT USED FOR UNKNOWN INDICATION
     Dosage: 0.25 MG, TID, ORAL
     Route: 048
     Dates: end: 20111106
  4. PAROXETINE HCL [Suspect]
     Indication: DEPRESSION
     Dosage: 20 MG, QD, ORAL
     Route: 048
     Dates: end: 20111106

REACTIONS (5)
  - PANCREATITIS ACUTE [None]
  - PANCREATIC PSEUDOCYST [None]
  - HYPERTRICHOSIS [None]
  - HYPERGLYCAEMIA [None]
  - DIZZINESS [None]
